FAERS Safety Report 14976000 (Version 1)
Quarter: 2018Q2

REPORT INFORMATION
  Report Type: Spontaneous
  Country: US (occurrence: US)
  Receive Date: 20180605
  Receipt Date: 20180605
  Transmission Date: 20180711
  Serious: No
  Sender: FDA-Public Use
  Company Number: US-ROCHE-2094489

PATIENT
  Sex: Female

DRUGS (9)
  1. IMURAN [Concomitant]
     Active Substance: AZATHIOPRINE
  2. SIMPONI [Concomitant]
     Active Substance: GOLIMUMAB
  3. HUMIRA [Concomitant]
     Active Substance: ADALIMUMAB
  4. PLAQUENIL [Concomitant]
     Active Substance: HYDROXYCHLOROQUINE SULFATE
  5. ORENCIA [Concomitant]
     Active Substance: ABATACEPT
  6. METHOTREXATE. [Concomitant]
     Active Substance: METHOTREXATE
  7. ARAVA [Concomitant]
     Active Substance: LEFLUNOMIDE
  8. ENBREL [Concomitant]
     Active Substance: ETANERCEPT
  9. ACTEMRA [Suspect]
     Active Substance: TOCILIZUMAB
     Indication: RHEUMATOID ARTHRITIS
     Route: 065

REACTIONS (2)
  - Treatment failure [Unknown]
  - No adverse event [Unknown]
